FAERS Safety Report 24964913 (Version 1)
Quarter: 2025Q1

REPORT INFORMATION
  Report Type: Spontaneous
  Country: DE (occurrence: DE)
  Receive Date: 20250213
  Receipt Date: 20250213
  Transmission Date: 20250409
  Serious: Yes (Death, Other)
  Sender: Haleon PLC
  Company Number: None

PATIENT
  Age: 81 Year
  Sex: Female

DRUGS (9)
  1. DICLOFENAC [Suspect]
     Active Substance: DICLOFENAC
     Indication: Arthritis
     Route: 065
  2. DICLOFENAC [Suspect]
     Active Substance: DICLOFENAC
     Indication: Arthritis
     Route: 065
  3. DICLOFENAC [Suspect]
     Active Substance: DICLOFENAC
     Indication: Joint destruction
  4. METHOTREXATE [Suspect]
     Active Substance: METHOTREXATE
     Indication: Arthritis
     Route: 065
  5. METHOTREXATE [Suspect]
     Active Substance: METHOTREXATE
     Indication: Arthritis
     Route: 065
  6. METHOTREXATE [Suspect]
     Active Substance: METHOTREXATE
     Route: 065
  7. METAMIZOLE [Suspect]
     Active Substance: METAMIZOLE
     Indication: Arthritis
     Route: 065
  8. METAMIZOLE [Suspect]
     Active Substance: METAMIZOLE
     Indication: Arthritis
  9. METAMIZOLE [Suspect]
     Active Substance: METAMIZOLE
     Indication: Joint destruction

REACTIONS (12)
  - Pneumonia [Fatal]
  - Ecchymosis [Fatal]
  - Myelosuppression [Fatal]
  - Bone marrow disorder [Fatal]
  - Skin haemorrhage [Fatal]
  - Gastritis haemorrhagic [Fatal]
  - Agranulocytosis [Fatal]
  - Mucosal haemorrhage [Fatal]
  - Haemorrhage subcutaneous [Fatal]
  - Drug interaction [Fatal]
  - Haemorrhagic diathesis [Fatal]
  - White blood cell count decreased [Fatal]
